FAERS Safety Report 10183163 (Version 1)
Quarter: 2014Q2

REPORT INFORMATION
  Report Type: Spontaneous
  Country: US (occurrence: None)
  Receive Date: 20140425
  Receipt Date: 20140425
  Transmission Date: 20141212
  Serious: No
  Sender: FDA-Public Use
  Company Number: AP356-00503-SPO-US

PATIENT
  Age: 68 Year
  Sex: Female

DRUGS (6)
  1. BELVIQ (LORCASERIN HYDROCHLORIDE) [Suspect]
     Indication: WEIGHT DECREASED
  2. AGGREOX (ASASANTIN) [Concomitant]
  3. SETRILINE (SERTRALINE) [Concomitant]
  4. CRESTOR (ROSUVASTATIN) [Concomitant]
  5. RAMIPRIL (RAMIPRIL) [Concomitant]
  6. LUNESTA [Concomitant]

REACTIONS (1)
  - Weight increased [None]
